FAERS Safety Report 9080826 (Version 3)
Quarter: 2013Q2

REPORT INFORMATION
  Report Type: Spontaneous
  Country: GB (occurrence: GB)
  Receive Date: 20130218
  Receipt Date: 20130523
  Transmission Date: 20140414
  Serious: Yes (Other)
  Sender: FDA-Public Use
  Company Number: GB-JNJFOC-20130205415

PATIENT
  Age: 21 Year
  Sex: Female

DRUGS (4)
  1. STELARA [Suspect]
     Indication: PRODUCT USED FOR UNKNOWN INDICATION
     Route: 058
  2. STELARA [Suspect]
     Indication: PRODUCT USED FOR UNKNOWN INDICATION
     Route: 058
     Dates: start: 20121214, end: 20121214
  3. UNSPECIFIED ANTIBOTIC [Suspect]
     Indication: LOWER RESPIRATORY TRACT INFECTION
     Route: 065
  4. UNSPECIFIED ANTIBOTIC [Suspect]
     Indication: EAR INFECTION
     Route: 065

REACTIONS (6)
  - Ear infection [Unknown]
  - Lower respiratory tract infection [Unknown]
  - Nausea [Recovered/Resolved]
  - Vomiting [Unknown]
  - Drug dose omission [Unknown]
  - Malaise [Unknown]
